FAERS Safety Report 5838820-9 (Version None)
Quarter: 2008Q3

REPORT INFORMATION
  Report Type: 
  Country: None (occurrence: None)
  Receive Date: 20080808
  Receipt Date: 20080729
  Transmission Date: 20090109
  Serious: Yes (Hospitalization)
  Sender: FDA-Public Use
  Company Number: US-ELI_LILLY_AND_COMPANY-US200807004677

PATIENT
  Sex: Female

DRUGS (3)
  1. CYMBALTA [Suspect]
     Indication: NEUROPATHY PERIPHERAL
     Dosage: 30 MG, DAILY (1/D)
     Dates: start: 20080424, end: 20080521
  2. CYMBALTA [Interacting]
     Dosage: 1 D/F, UNK
     Dates: start: 20080601, end: 20080601
  3. NEURONTIN [Concomitant]
     Dosage: 1 D/F, UNK

REACTIONS (7)
  - ANOREXIA [None]
  - ASTHENIA [None]
  - DEMYELINATING POLYNEUROPATHY [None]
  - NAUSEA [None]
  - PAIN [None]
  - VISION BLURRED [None]
  - VISUAL IMPAIRMENT [None]
